FAERS Safety Report 5827130-1 (Version None)
Quarter: 2008Q3

REPORT INFORMATION
  Report Type: 
  Country: None (occurrence: None)
  Receive Date: 20080729
  Receipt Date: 20080729
  Transmission Date: 20090109
  Serious: Yes (Other)
  Sender: FDA-Public Use
  Company Number: None

PATIENT
  Sex: Male
  Weight: 90.7194 kg

DRUGS (2)
  1. DICLOFENAC SODIUM [Suspect]
     Indication: PAIN
     Dosage: 1 TAB TWICE DAILY PRN PO
     Route: 048
     Dates: start: 20080607
  2. DICLOFENAC SODIUM [Suspect]

REACTIONS (1)
  - PHARMACEUTICAL PRODUCT COMPLAINT [None]
